FAERS Safety Report 18162374 (Version 2)
Quarter: 2020Q4

REPORT INFORMATION
  Report Type: Report from Study
  Country: US (occurrence: US)
  Receive Date: 20200818
  Receipt Date: 20201016
  Transmission Date: 20210113
  Serious: Yes (Other)
  Sender: FDA-Public Use
  Company Number: US-AGIOS-2008US02080

PATIENT

DRUGS (4)
  1. TIBSOVO [Suspect]
     Active Substance: IVOSIDENIB
     Indication: ACUTE MYELOID LEUKAEMIA
     Dosage: 250 MG, 2 TABLETS (500 MG), QD ON DAYS 8-28 OF 28 DAY CYCLE
     Route: 048
     Dates: start: 20200708, end: 20200710
  2. DIPHENHYDRAMINE. [Concomitant]
     Active Substance: DIPHENHYDRAMINE
     Dosage: 50 MILLIGRAM
     Route: 042
     Dates: start: 20200710, end: 20200712
  3. CYTARABINE. [Concomitant]
     Active Substance: CYTARABINE
     Indication: NEOPLASM MALIGNANT
     Dosage: 1.5 GRAM PER M2 DAILY
     Route: 042
     Dates: start: 20200707, end: 20200711
  4. FAMOTIDINE. [Concomitant]
     Active Substance: FAMOTIDINE
     Dosage: 20 MILLIGRAM, BID
     Route: 048
     Dates: start: 20200707

REACTIONS (4)
  - Visual impairment [Recovered/Resolved]
  - Dermatitis exfoliative generalised [Recovered/Resolved]
  - Pruritus [Recovered/Resolved]
  - Off label use [Recovered/Resolved]

NARRATIVE: CASE EVENT DATE: 20200708
